FAERS Safety Report 7078399-X (Version None)
Quarter: 2010Q4

REPORT INFORMATION
  Report Type: 
  Country: None (occurrence: None)
  Receive Date: 20101102
  Receipt Date: 20101022
  Transmission Date: 20110411
  Serious: Yes (Death, Hospitalization, Other)
  Sender: FDA-Public Use
  Company Number: JP-BAYER-201010710BYL

PATIENT
  Age: 74 Year
  Sex: Male
  Weight: 46 kg

DRUGS (12)
  1. NEXAVAR [Suspect]
     Indication: HEPATIC NEOPLASM MALIGNANT
     Dosage: TOTAL DAILY DOSE: 800 MG  UNIT DOSE: 200 MG
     Route: 048
     Dates: start: 20100129, end: 20100202
  2. NEXAVAR [Suspect]
     Dosage: UNIT DOSE: 200 MG
     Route: 048
     Dates: start: 20100208, end: 20100208
  3. OXYCONTIN [Concomitant]
     Route: 048
     Dates: start: 20100121, end: 20100309
  4. OXINORM [Concomitant]
     Route: 048
     Dates: start: 20100121, end: 20100309
  5. TRAVELMIN [Concomitant]
     Route: 048
     Dates: start: 20100122, end: 20100309
  6. PRIMPERAN [Concomitant]
     Route: 048
     Dates: start: 20100122, end: 20100309
  7. URSO 250 [Concomitant]
     Route: 048
     Dates: start: 20100125, end: 20100309
  8. DEPAS [Concomitant]
     Route: 048
     Dates: start: 20100129, end: 20100309
  9. MAGNESIUM OXIDE [Concomitant]
     Route: 048
     Dates: start: 20100130, end: 20100206
  10. NAIXAN [Concomitant]
     Route: 048
     Dates: start: 20100201
  11. ROCEPHIN [Concomitant]
     Route: 042
     Dates: start: 20100204
  12. MAGLAX [Concomitant]
     Route: 048
     Dates: start: 20100206, end: 20100309

REACTIONS (7)
  - ALANINE AMINOTRANSFERASE INCREASED [None]
  - ASPARTATE AMINOTRANSFERASE INCREASED [None]
  - BLOOD SODIUM DECREASED [None]
  - DECREASED APPETITE [None]
  - GENERAL PHYSICAL HEALTH DETERIORATION [None]
  - INFECTION [None]
  - STOMATITIS [None]
